FAERS Safety Report 13941016 (Version 2)
Quarter: 2017Q3

REPORT INFORMATION
  Report Type: Spontaneous
  Country: NL (occurrence: NL)
  Receive Date: 20170906
  Receipt Date: 20170927
  Transmission Date: 20171127
  Serious: Yes (Hospitalization, Other)
  Sender: FDA-Public Use
  Company Number: NL-PFIZER INC-2017377396

PATIENT
  Age: 83 Year
  Sex: Female

DRUGS (4)
  1. SOMAVERT [Suspect]
     Active Substance: PEGVISOMANT
     Indication: ACROMEGALY
     Dosage: UNK
     Route: 058
     Dates: start: 20041008
  2. SOMAVERT [Suspect]
     Active Substance: PEGVISOMANT
     Dosage: 60 MG 2X/WEEK AND 40 MG 1X/WEEK
     Route: 058
     Dates: start: 20120711
  3. DEXTRAN 70 W/HYPROMELLOSE [Concomitant]
     Dosage: 1 GTT, 4X/DAY BOTH EYES
     Route: 047
  4. OCULENTUM SIMPLEX [Concomitant]
     Dosage: USE FOR THE NIGHT
     Route: 047

REACTIONS (5)
  - Syncope [Recovered/Resolved]
  - Malaise [Recovered/Resolved]
  - Hypotension [Recovered/Resolved]
  - Vomiting [Recovered/Resolved]
  - Product use issue [Unknown]

NARRATIVE: CASE EVENT DATE: 20170826
